FAERS Safety Report 6535665-1 (Version None)
Quarter: 2010Q1

REPORT INFORMATION
  Report Type: 
  Country: None (occurrence: None)
  Receive Date: 20100113
  Receipt Date: 20100104
  Transmission Date: 20100710
  Serious: Yes (Death)
  Sender: FDA-Public Use
  Company Number: US-BAYER-201010988GPV

PATIENT
  Age: 35 Year
  Sex: Female

DRUGS (4)
  1. ACETAMINOPHEN/DIPHENHYDRAMINE [Suspect]
     Indication: COMPLETED SUICIDE
  2. LORAZEPAM [Suspect]
     Indication: COMPLETED SUICIDE
  3. COCAINE [Suspect]
     Indication: COMPLETED SUICIDE
  4. CARISOPRODOL [Suspect]
     Indication: COMPLETED SUICIDE

REACTIONS (1)
  - DRUG TOXICITY [None]
